FAERS Safety Report 4714956-0 (Version None)
Quarter: 2005Q3

REPORT INFORMATION
  Report Type: 
  Country: None (occurrence: None)
  Receive Date: 20050715
  Receipt Date: 20041217
  Transmission Date: 20060218
  Serious: Yes (Death, Hospitalization)
  Sender: FDA-Public Use
  Company Number: FR-JNJFOC-20041202493

PATIENT
  Sex: Male

DRUGS (5)
  1. PROPULSID [Suspect]
     Route: 050
  2. MODOPAR [Concomitant]
     Route: 048
  3. MODOPAR [Concomitant]
     Indication: PARKINSON'S DISEASE
     Route: 048
  4. AUGMENTIN '125' [Concomitant]
  5. AUGMENTIN '125' [Concomitant]
     Indication: BRONCHOPNEUMOPATHY

REACTIONS (2)
  - ACUTE RESPIRATORY FAILURE [None]
  - PNEUMONIA ASPIRATION [None]
